FAERS Safety Report 17984617 (Version 4)
Quarter: 2021Q2

REPORT INFORMATION
  Report Type: Spontaneous
  Country: US (occurrence: US)
  Receive Date: 20200706
  Receipt Date: 20210401
  Transmission Date: 20210717
  Serious: No
  Sender: FDA-Public Use
  Company Number: US-SA-2020SA173420

PATIENT
  Age: 55 Year
  Sex: Female

DRUGS (26)
  1. EUCRISA [Concomitant]
     Active Substance: CRISABOROLE
  2. FLUOCINONIDE. [Concomitant]
     Active Substance: FLUOCINONIDE
  3. AURSTAT [Concomitant]
  4. TOPICORTE [Concomitant]
     Active Substance: DESOXIMETASONE
  5. DIFLORASONE [Concomitant]
     Active Substance: DIFLORASONE DIACETATE
     Indication: PRURITUS
  6. TRIAMCINOLONE [Concomitant]
     Active Substance: TRIAMCINOLONE
  7. ZYRTEC [Concomitant]
     Active Substance: CETIRIZINE HYDROCHLORIDE
  8. MUPIROCIN. [Concomitant]
     Active Substance: MUPIROCIN
  9. MULTIPLE VITAMIN [Concomitant]
     Active Substance: VITAMINS
  10. VANOS [Concomitant]
     Active Substance: FLUOCINONIDE
  11. TOPICORTE [Concomitant]
     Active Substance: DESOXIMETASONE
  12. FLUCINONIDE [Concomitant]
  13. XYZAL [Concomitant]
     Active Substance: LEVOCETIRIZINE DIHYDROCHLORIDE
  14. HYLATOPICPLUS [Concomitant]
     Active Substance: EMOLLIENTS
  15. PREDNISONE. [Concomitant]
     Active Substance: PREDNISONE
  16. PREDNISONE. [Concomitant]
     Active Substance: PREDNISONE
  17. VITAMINS NOS [Concomitant]
     Active Substance: VITAMINS
  18. DUPIXENT [Suspect]
     Active Substance: DUPILUMAB
     Indication: PSORIASIS
     Dosage: 300 MG, QOW
     Route: 058
     Dates: start: 20200520
  19. DUPIXENT [Suspect]
     Active Substance: DUPILUMAB
     Indication: DERMATITIS ATOPIC
  20. DERMA SMOOTH [Concomitant]
  21. EUCRISA [Concomitant]
     Active Substance: CRISABOROLE
  22. MUPIROCIN. [Concomitant]
     Active Substance: MUPIROCIN
  23. VANOS [Concomitant]
     Active Substance: FLUOCINONIDE
  24. DIFLORASONE [Concomitant]
     Active Substance: DIFLORASONE DIACETATE
  25. XYZAL [Concomitant]
     Active Substance: LEVOCETIRIZINE DIHYDROCHLORIDE
  26. ZYRTEC [Concomitant]
     Active Substance: CETIRIZINE HYDROCHLORIDE

REACTIONS (8)
  - Psoriasis [Unknown]
  - Eye infection [Not Recovered/Not Resolved]
  - Arthralgia [Not Recovered/Not Resolved]
  - Urinary tract infection [Recovered/Resolved]
  - Dermatitis atopic [Not Recovered/Not Resolved]
  - Rash [Not Recovered/Not Resolved]
  - Conjunctivitis [Not Recovered/Not Resolved]
  - Product use in unapproved indication [Unknown]

NARRATIVE: CASE EVENT DATE: 2020
